FAERS Safety Report 12046239 (Version 2)
Quarter: 2016Q2

REPORT INFORMATION
  Report Type: Spontaneous
  Country: JP (occurrence: JP)
  Receive Date: 20160208
  Receipt Date: 20160411
  Transmission Date: 20160815
  Serious: Yes (Hospitalization, Other)
  Sender: FDA-Public Use
  Company Number: JP-OTSUKA-2015_015748

PATIENT
  Age: 74 Year
  Sex: Male

DRUGS (7)
  1. PROCAINAMIDE HYDROCHLORIDE. [Suspect]
     Active Substance: PROCAINAMIDE HYDROCHLORIDE
     Indication: ATRIAL FLUTTER
     Dosage: 300 MG, DAILY DOSE
     Route: 042
     Dates: start: 20151120, end: 20151122
  2. SAMSCA [Suspect]
     Active Substance: TOLVAPTAN
     Indication: CARDIAC FAILURE CHRONIC
     Dosage: 7.5 MG, DAILY DOSE
     Route: 048
     Dates: start: 20151120, end: 20151120
  3. MAINTATE [Suspect]
     Active Substance: BISOPROLOL FUMARATE
     Indication: PRODUCT USED FOR UNKNOWN INDICATION
     Dosage: 5 MG, DAILY DOSE
     Route: 048
     Dates: start: 20151106, end: 20151120
  4. SOLDACTONE [Suspect]
     Active Substance: CANRENOATE POTASSIUM
     Indication: CARDIAC FAILURE
     Dosage: 100 MG, DAILY DOSE
     Route: 042
     Dates: start: 20151120, end: 20151126
  5. FUROSEMIDE. [Concomitant]
     Active Substance: FUROSEMIDE
     Indication: CARDIAC FAILURE
     Dosage: BETWEEN 20MG AND 60MG, DAILY DOSE
     Route: 042
     Dates: start: 20151121, end: 20151130
  6. SAMSCA [Suspect]
     Active Substance: TOLVAPTAN
     Indication: CARDIAC FAILURE CHRONIC
     Dosage: 15 MG, DAILY DOSE
     Route: 048
     Dates: start: 20151121, end: 20151124
  7. RYTHMODAN P [Suspect]
     Active Substance: DISOPYRAMIDE PHOSPHATE
     Indication: ATRIAL FLUTTER
     Dosage: 50 MG, DAILY DOSE
     Route: 048
     Dates: start: 20151120, end: 20151122

REACTIONS (1)
  - Drug-induced liver injury [Recovered/Resolved]

NARRATIVE: CASE EVENT DATE: 20151124
